FAERS Safety Report 19109973 (Version 1)
Quarter: 2021Q2

REPORT INFORMATION
  Report Type: Spontaneous
  Country: US (occurrence: US)
  Receive Date: 20210408
  Receipt Date: 20210408
  Transmission Date: 20210717
  Serious: Yes (Hospitalization, Other)
  Sender: FDA-Public Use
  Company Number: US-JNJFOC-20210411258

PATIENT
  Age: 24 Year
  Sex: Male

DRUGS (7)
  1. DEXAMETHASONE. [Concomitant]
     Active Substance: DEXAMETHASONE
  2. VELETRI [Suspect]
     Active Substance: EPOPROSTENOL
     Indication: ACUTE RESPIRATORY DISTRESS SYNDROME
     Route: 065
     Dates: start: 20200703, end: 20200707
  3. TOCILIZUMAB. [Concomitant]
     Active Substance: TOCILIZUMAB
  4. EICOSAPENTAENOIC ACID ETHYL ESTER [Concomitant]
     Active Substance: ICOSAPENT ETHYL
     Dates: start: 20200711, end: 20200714
  5. REMDESIVIR. [Concomitant]
     Active Substance: REMDESIVIR
  6. CONVALESCENT PLASMA COVID?19 [Concomitant]
  7. EICOSAPENTAENOIC ACID ETHYL ESTER [Concomitant]
     Active Substance: ICOSAPENT ETHYL
     Dates: start: 20200720

REACTIONS (4)
  - Pneumonitis [Unknown]
  - Off label use [Unknown]
  - Septic shock [Unknown]
  - Product use in unapproved indication [Unknown]

NARRATIVE: CASE EVENT DATE: 202007
